FAERS Safety Report 6717700-0 (Version None)
Quarter: 2010Q2

REPORT INFORMATION
  Report Type: 
  Country: None (occurrence: None)
  Receive Date: 20100510
  Receipt Date: 20100428
  Transmission Date: 20101027
  Serious: Yes (Hospitalization, Other)
  Sender: FDA-Public Use
  Company Number: GB-PFIZER INC-2009291536

PATIENT
  Age: 45 Year
  Sex: Male
  Weight: 91 kg

DRUGS (9)
  1. PHENYTOIN [Suspect]
     Dosage: 50 MG, UNK
     Dates: end: 20090814
  2. AVASTIN [Suspect]
     Dosage: 1287.5 MG, EVERY 3 WEEKS
     Route: 042
     Dates: start: 20090721
  3. NEULASTA [Suspect]
     Indication: CHEMOTHERAPY
     Dosage: 6 MG, EVERY 3 WEEKS
     Route: 058
     Dates: start: 20080722
  4. NEUPOGEN [Suspect]
     Indication: CHEMOTHERAPY
     Dosage: UNK
     Route: 058
  5. CARBOPLATIN [Concomitant]
     Dosage: 50 MG, EVERY 3 WEEKS
     Route: 042
     Dates: start: 20090721
  6. DEXAMETHASONE [Concomitant]
     Dosage: 6 MG, UNK
     Route: 048
  7. METOCLOPRAMIDE [Concomitant]
     Dosage: 10 MG, UNK
     Route: 048
     Dates: start: 20090721
  8. ONDANSETRON [Concomitant]
     Dosage: 8 MG, 2X/DAY
     Route: 048
     Dates: start: 20090721
  9. VALPROATE SODIUM [Concomitant]
     Dosage: UNK

REACTIONS (8)
  - BODY TEMPERATURE INCREASED [None]
  - CONFUSIONAL STATE [None]
  - CYTOKINE STORM [None]
  - DEEP VEIN THROMBOSIS [None]
  - DELIRIUM [None]
  - DERMATITIS ALLERGIC [None]
  - IMPETIGO [None]
  - PETECHIAE [None]
